FAERS Safety Report 5098176-9 (Version None)
Quarter: 2006Q3

REPORT INFORMATION
  Report Type: 
  Country: None (occurrence: None)
  Receive Date: 20060906
  Receipt Date: 20060516
  Transmission Date: 20061208
  Serious: No
  Sender: FDA-Public Use
  Company Number: 265-70-0235

PATIENT
  Age: 62 Year
  Sex: Female
  Weight: 102.3 kg

DRUGS (10)
  1. REQUIP [Suspect]
     Indication: RESTLESS LEGS SYNDROME
     Dosage: .5MG PER DAY
     Route: 048
     Dates: start: 20060512, end: 20060514
  2. CLONAZEPAM [Concomitant]
  3. LEVOTHYROXINE SODIUM [Concomitant]
  4. ZOCOR [Concomitant]
  5. MAXZIDE [Concomitant]
  6. CELEXA [Concomitant]
  7. PREVACID [Concomitant]
  8. IRUMED (LISINOPRIL) [Concomitant]
  9. PROPRANOLOL [Concomitant]
  10. ALLEGRA [Concomitant]

REACTIONS (2)
  - BLOOD PRESSURE FLUCTUATION [None]
  - PALPITATIONS [None]
